FAERS Safety Report 13549353 (Version 1)
Quarter: 2017Q2

REPORT INFORMATION
  Report Type: Spontaneous
  Country: US (occurrence: US)
  Receive Date: 20170516
  Receipt Date: 20170516
  Transmission Date: 20170830
  Serious: No
  Sender: FDA-Public Use
  Company Number: ALCN2017US003332

PATIENT
  Sex: Female

DRUGS (2)
  1. ICAPS LZ [Suspect]
     Active Substance: VITAMINS
     Dosage: UNK
     Route: 047
  2. ICAPS LZ [Suspect]
     Active Substance: VITAMINS
     Indication: PRODUCT USED FOR UNKNOWN INDICATION
     Route: 047

REACTIONS (1)
  - Chromaturia [Not Recovered/Not Resolved]
